FAERS Safety Report 21488611 (Version 1)
Quarter: 2022Q4

REPORT INFORMATION
  Report Type: Report from Study
  Country: US (occurrence: None)
  Receive Date: 20221021
  Receipt Date: 20221021
  Transmission Date: 20230113
  Serious: Yes (Hospitalization, Other)
  Sender: FDA-Public Use
  Company Number: 2022A348369

PATIENT
  Sex: Female

DRUGS (2)
  1. LYNPARZA [Suspect]
     Active Substance: OLAPARIB
     Indication: Ovarian cancer
     Route: 048
     Dates: start: 20220219
  2. ETOPOSIDE [Concomitant]
     Active Substance: ETOPOSIDE

REACTIONS (7)
  - Cardiac disorder [Unknown]
  - Seizure [Unknown]
  - Blood pressure increased [Unknown]
  - Hypokalaemia [Unknown]
  - Dehydration [Unknown]
  - Alopecia [Unknown]
  - Dyspnoea [Unknown]
